FAERS Safety Report 6017405-8 (Version None)
Quarter: 2008Q4

REPORT INFORMATION
  Report Type: 
  Country: None (occurrence: None)
  Receive Date: 20081223
  Receipt Date: 20081215
  Transmission Date: 20090506
  Serious: Yes (Other)
  Sender: FDA-Public Use
  Company Number: PHHY2008CA32311

PATIENT
  Sex: Female

DRUGS (2)
  1. EXELON [Suspect]
     Dosage: 5 DAILY
     Route: 061
     Dates: start: 20080930
  2. NORVASC [Concomitant]

REACTIONS (5)
  - DIARRHOEA [None]
  - GASTROENTERITIS [None]
  - HALLUCINATION [None]
  - HYPOTENSION [None]
  - NAUSEA [None]
